FAERS Safety Report 17456254 (Version 2)
Quarter: 2020Q1

REPORT INFORMATION
  Report Type: Spontaneous
  Country: US (occurrence: US)
  Receive Date: 20200225
  Receipt Date: 20200309
  Transmission Date: 20200409
  Serious: No
  Sender: FDA-Public Use
  Company Number: US-MYLANLABS-2020M1015834

PATIENT
  Sex: Female
  Weight: 68.03 kg

DRUGS (2)
  1. WIXELA INHUB [Suspect]
     Active Substance: FLUTICASONE PROPIONATE\SALMETEROL XINAFOATE
     Dosage: 1 UNK, BID (TOOK ONE DOSE AT 6:00 PM AND THE NEXT ONE AT 7:00 PM)
     Route: 048
     Dates: start: 20200209
  2. WIXELA INHUB [Suspect]
     Active Substance: FLUTICASONE PROPIONATE\SALMETEROL XINAFOATE
     Indication: PRODUCT USED FOR UNKNOWN INDICATION
     Dosage: 1 UNK, BID (PRODUCT AT 7:00 AM AND 7:00 PM EST EVERY DAY)
     Route: 048
     Dates: start: 20200125

REACTIONS (6)
  - Dysphonia [Not Recovered/Not Resolved]
  - Chills [Not Recovered/Not Resolved]
  - Device issue [Unknown]
  - Inappropriate schedule of product administration [Not Recovered/Not Resolved]
  - Tachycardia [Not Recovered/Not Resolved]
  - Product dose omission [Not Recovered/Not Resolved]

NARRATIVE: CASE EVENT DATE: 2020
